FAERS Safety Report 6003985-5 (Version None)
Quarter: 2008Q4

REPORT INFORMATION
  Report Type: 
  Country: None (occurrence: None)
  Receive Date: 20081212
  Receipt Date: 20081212
  Transmission Date: 20090506
  Serious: Yes (Other)
  Sender: FDA-Public Use
  Company Number: None

PATIENT
  Age: 39 Year
  Sex: Female
  Weight: 58.9676 kg

DRUGS (1)
  1. CHLORHEXIDINE GLUCONATE [Suspect]
     Indication: GINGIVITIS
     Dosage: ONE-HALF OUNCE MEDI-CUP TWICE DAILY PO
     Route: 048
     Dates: start: 20080419, end: 20080425

REACTIONS (2)
  - GINGIVAL DISCOLOURATION [None]
  - GINGIVAL PAIN [None]
